FAERS Safety Report 6698098-3 (Version None)
Quarter: 2010Q2

REPORT INFORMATION
  Report Type: 
  Country: None (occurrence: None)
  Receive Date: 20100427
  Receipt Date: 20100108
  Transmission Date: 20101027
  Serious: No
  Sender: FDA-Public Use
  Company Number: US-KINGPHARMUSA00001-K201000022

PATIENT
  Age: 9 Year
  Sex: Female

DRUGS (1)
  1. BICILLIN C-R 900/300 [Suspect]
     Dosage: UNK, SINGLE
     Route: 030
     Dates: start: 20100104, end: 20100104

REACTIONS (3)
  - DRUG DISPENSING ERROR [None]
  - NO ADVERSE EVENT [None]
  - WRONG DRUG ADMINISTERED [None]
